FAERS Safety Report 7449621-2 (Version None)
Quarter: 2011Q2

REPORT INFORMATION
  Report Type: 
  Country: None (occurrence: None)
  Receive Date: 20110421
  Receipt Date: 20110308
  Transmission Date: 20111010
  Serious: Yes (Hospitalization)
  Sender: FDA-Public Use
  Company Number: 2011SP015878

PATIENT
  Sex: Male

DRUGS (1)
  1. PEGATRON (PEGYLATED INTERFERON ALFA-2B W/RIBAVIRIN) [Suspect]
     Indication: HEPATITIS C
     Dates: start: 20100706

REACTIONS (15)
  - PLATELET COUNT DECREASED [None]
  - INFLUENZA [None]
  - VOMITING [None]
  - INFLUENZA LIKE ILLNESS [None]
  - JOINT INJURY [None]
  - FALL [None]
  - INCREASED UPPER AIRWAY SECRETION [None]
  - DIARRHOEA [None]
  - INSOMNIA [None]
  - PRODUCTIVE COUGH [None]
  - CARDIAC INFECTION [None]
  - SEPSIS [None]
  - DYSPNOEA [None]
  - LOSS OF CONSCIOUSNESS [None]
  - HEADACHE [None]
